FAERS Safety Report 8470441-4 (Version None)
Quarter: 2012Q2

REPORT INFORMATION
  Report Type: 
  Country: None (occurrence: None)
  Receive Date: 20120627
  Receipt Date: 20120619
  Transmission Date: 20120825
  Serious: Yes (Hospitalization, Other)
  Sender: FDA-Public Use
  Company Number: US-US-EMD SERONO, INC.-7138579

PATIENT
  Sex: Male

DRUGS (1)
  1. REBIF [Suspect]
     Indication: MULTIPLE SCLEROSIS
     Route: 058
     Dates: start: 20071206

REACTIONS (5)
  - HAEMORRHOIDAL HAEMORRHAGE [None]
  - CHOKING [None]
  - ASPIRATION [None]
  - SPEECH DISORDER [None]
  - THYROID DISORDER [None]
